FAERS Safety Report 5772435-6 (Version None)
Quarter: 2008Q2

REPORT INFORMATION
  Report Type: 
  Country: None (occurrence: None)
  Receive Date: 20080613
  Receipt Date: 20080603
  Transmission Date: 20081010
  Serious: Yes (Death, Life-Threatening, Hospitalization, Other)
  Sender: FDA-Public Use
  Company Number: US-ELI_LILLY_AND_COMPANY-US200806000828

PATIENT
  Sex: Male
  Weight: 125.17 kg

DRUGS (6)
  1. BYETTA [Suspect]
     Indication: OBESITY
     Dosage: 5 UG, 2/D
     Route: 058
     Dates: start: 20080401, end: 20080415
  2. BYETTA [Suspect]
     Dosage: 5 UG, DAILY (1/D)
     Route: 058
     Dates: start: 20080415, end: 20080522
  3. METFORMIN [Concomitant]
     Indication: TYPE 2 DIABETES MELLITUS
     Dosage: 500 MG, UNK
     Dates: end: 20080101
  4. METFORMIN [Concomitant]
     Dosage: 1000 MG, UNK
     Dates: start: 20080101
  5. LIPITOR [Concomitant]
     Indication: BLOOD CHOLESTEROL
     Dosage: 20 MG, UNK
  6. ANTI-DIABETICS [Concomitant]
     Indication: TYPE 2 DIABETES MELLITUS
     Dosage: UNK, UNK
     Dates: start: 20080101, end: 20080301

REACTIONS (14)
  - ACUTE RESPIRATORY DISTRESS SYNDROME [None]
  - CHOLECYSTITIS [None]
  - DEATH [None]
  - DISSEMINATED INTRAVASCULAR COAGULATION [None]
  - HEPATIC FAILURE [None]
  - HEPATIC NECROSIS [None]
  - MALAISE [None]
  - MULTI-ORGAN FAILURE [None]
  - NAUSEA [None]
  - RENAL FAILURE ACUTE [None]
  - SEPSIS SYNDROME [None]
  - THROMBOCYTOPENIA [None]
  - TRANSFUSION REACTION [None]
  - WEIGHT DECREASED [None]
